FAERS Safety Report 22190408 (Version 2)
Quarter: 2023Q2

REPORT INFORMATION
  Report Type: Spontaneous
  Country: ES (occurrence: ES)
  Receive Date: 20230410
  Receipt Date: 20230510
  Transmission Date: 20230722
  Serious: Yes (Life-Threatening, Hospitalization, Other)
  Sender: FDA-Public Use
  Company Number: ES-CELLTRION INC.-2023ES007015

PATIENT

DRUGS (3)
  1. RITUXIMAB [Suspect]
     Active Substance: RITUXIMAB
     Indication: Follicular lymphoma
     Dosage: LAST CYCLE ON 04/MAR/2020
     Dates: end: 20200304
  2. TOCILIZUMAB [Suspect]
     Active Substance: TOCILIZUMAB
     Indication: COVID-19
     Dosage: SINGLE DOSE.
  3. BENDAMUSTINE [Concomitant]
     Active Substance: BENDAMUSTINE
     Indication: Follicular lymphoma
     Dosage: (LAST CYCLE ON 4 MARCH 2020)
     Dates: end: 20200304

REACTIONS (3)
  - COVID-19 pneumonia [Recovering/Resolving]
  - Lymphopenia [Recovering/Resolving]
  - Off label use [Unknown]
